FAERS Safety Report 8251392-7 (Version None)
Quarter: 2012Q2

REPORT INFORMATION
  Report Type: 
  Country: None (occurrence: None)
  Receive Date: 20120402
  Receipt Date: 20120326
  Transmission Date: 20120825
  Serious: Yes (Hospitalization, Other)
  Sender: FDA-Public Use
  Company Number: FR-PFIZER INC-2012056321

PATIENT
  Age: 65 Year
  Sex: Female

DRUGS (2)
  1. LYRICA [Suspect]
     Indication: MUSCLE SPASMS
  2. LYRICA [Suspect]
     Indication: ARTHRALGIA
     Dosage: 50 MG, 2X/DAY
     Dates: start: 20111101, end: 20120224

REACTIONS (18)
  - TREMOR [None]
  - MIDDLE INSOMNIA [None]
  - DRUG INEFFECTIVE [None]
  - PANIC ATTACK [None]
  - APHAGIA [None]
  - DYSPNOEA [None]
  - DECREASED APPETITE [None]
  - SKIN IRRITATION [None]
  - AMNESIA [None]
  - WEIGHT DECREASED [None]
  - DRY THROAT [None]
  - ANXIETY [None]
  - MALAISE [None]
  - MENTAL DISORDER [None]
  - WITHDRAWAL SYNDROME [None]
  - DYSPHAGIA [None]
  - PAIN IN EXTREMITY [None]
  - INSOMNIA [None]
